FAERS Safety Report 4395206-4 (Version None)
Quarter: 2004Q3

REPORT INFORMATION
  Report Type: 
  Country: None (occurrence: None)
  Receive Date: 20040706
  Receipt Date: 20040618
  Transmission Date: 20050211
  Serious: Yes (Other)
  Sender: FDA-Public Use
  Company Number: 2004IM000223

PATIENT
  Age: 62 Year
  Sex: Female

DRUGS (5)
  1. ADVAFERON (A643_INTERFERON ALFACON-1) [Suspect]
     Indication: HEPATITIS C
     Dosage: 18MU;QD;SUBCUTANEOUS
     Route: 058
     Dates: start: 20020325, end: 20020412
  2. BUCILLAMINE [Concomitant]
  3. NABUMETONE [Concomitant]
  4. SODIUM GUALENATE [Concomitant]
  5. FARNEZONE [Concomitant]

REACTIONS (5)
  - ALANINE AMINOTRANSFERASE INCREASED [None]
  - ASPARTATE AMINOTRANSFERASE INCREASED [None]
  - BLOOD ALKALINE PHOSPHATASE INCREASED [None]
  - GAMMA-GLUTAMYLTRANSFERASE INCREASED [None]
  - PYREXIA [None]
